FAERS Safety Report 10250644 (Version 3)
Quarter: 2014Q3

REPORT INFORMATION
  Report Type: Report from Study
  Country: KR (occurrence: KR)
  Receive Date: 20140620
  Receipt Date: 20140729
  Transmission Date: 20150326
  Serious: Yes (Death, Hospitalization)
  Sender: FDA-Public Use
  Company Number: KR-GLAXOSMITHKLINE-B1003937A

PATIENT
  Age: 46 Year
  Sex: Female
  Weight: 41.3 kg

DRUGS (3)
  1. OXALIPLATIN. [Suspect]
     Active Substance: OXALIPLATIN
     Indication: GASTRIC CANCER
     Dosage: 140MG PER DAY
     Route: 042
     Dates: start: 20131118, end: 20140508
  2. PAZOPANIB [Suspect]
     Active Substance: PAZOPANIB
     Indication: GASTRIC CANCER
     Dosage: 600MG PER DAY
     Route: 048
     Dates: start: 20131118, end: 20140529
  3. CAPECITABINE [Suspect]
     Active Substance: CAPECITABINE
     Indication: GASTRIC CANCER
     Dosage: 650MG TWICE PER DAY
     Route: 048
     Dates: start: 20131118, end: 20140522

REACTIONS (1)
  - Pneumonia [Fatal]

NARRATIVE: CASE EVENT DATE: 20140502
